FAERS Safety Report 5255147-7 (Version None)
Quarter: 2007Q1

REPORT INFORMATION
  Report Type: 
  Country: None (occurrence: None)
  Receive Date: 20070305
  Receipt Date: 20070227
  Transmission Date: 20070707
  Serious: Yes (Other)
  Sender: FDA-Public Use
  Company Number: 2007SE01116

PATIENT
  Age: 70 Year
  Sex: Female

DRUGS (4)
  1. AMIAS 2MG TABLETS [Suspect]
     Indication: HYPERTENSION
     Route: 048
     Dates: start: 20061206
  2. CLOPIDOGREL [Concomitant]
     Route: 048
     Dates: start: 20060321
  3. ASPIRIN [Concomitant]
     Route: 048
     Dates: start: 20060302
  4. SIMVASTATIN [Concomitant]
     Route: 048
     Dates: start: 20060302

REACTIONS (4)
  - HEADACHE [None]
  - LOSS OF CONSCIOUSNESS [None]
  - PHOTOPSIA [None]
  - VISUAL DISTURBANCE [None]
